FAERS Safety Report 4993764-X (Version None)
Quarter: 2006Q2

REPORT INFORMATION
  Report Type: 
  Country: None (occurrence: None)
  Receive Date: 20060505
  Receipt Date: 20051013
  Transmission Date: 20061013
  Serious: Yes (Hospitalization, Other)
  Sender: FDA-Public Use
  Company Number: US-MERCK-0510USA07200

PATIENT
  Age: 79 Year
  Sex: Female
  Weight: 73 kg

DRUGS (6)
  1. VIOXX [Suspect]
     Indication: ARTHRALGIA
     Route: 048
     Dates: start: 20030101, end: 20040101
  2. CELEBREX [Concomitant]
     Route: 065
     Dates: start: 20030101
  3. BEXTRA [Concomitant]
     Route: 065
     Dates: start: 20030101
  4. FOSAMAX [Concomitant]
     Route: 065
  5. CALTRATE [Concomitant]
     Route: 065
  6. GLUCOPHAGE [Concomitant]
     Route: 065

REACTIONS (15)
  - ANGINA PECTORIS [None]
  - BONE PAIN [None]
  - CARDIAC DISORDER [None]
  - CELLULITIS [None]
  - CORONARY ARTERY DISEASE [None]
  - CORONARY ARTERY OCCLUSION [None]
  - DYSPEPSIA [None]
  - FATIGUE [None]
  - FLATULENCE [None]
  - HYPERTENSION [None]
  - MYOCARDIAL INFARCTION [None]
  - NEOPLASM MALIGNANT [None]
  - OEDEMA [None]
  - OEDEMA PERIPHERAL [None]
  - VENTRICULAR DYSFUNCTION [None]
